FAERS Safety Report 17639046 (Version 1)
Quarter: 2020Q2

REPORT INFORMATION
  Report Type: Spontaneous
  Country: US (occurrence: US)
  Receive Date: 20200407
  Receipt Date: 20200407
  Transmission Date: 20200713
  Serious: Yes (Hospitalization)
  Sender: FDA-Public Use
  Company Number: US-JNJFOC-20200339536

PATIENT
  Age: 57 Year
  Sex: Male

DRUGS (1)
  1. INVOKANA [Suspect]
     Active Substance: CANAGLIFLOZIN
     Indication: PRODUCT USED FOR UNKNOWN INDICATION
     Route: 048

REACTIONS (6)
  - Diabetic ulcer [Unknown]
  - Cellulitis [Unknown]
  - Toe amputation [Unknown]
  - Osteomyelitis acute [Unknown]
  - Chronic kidney disease [Unknown]
  - Diabetic gangrene [Unknown]

NARRATIVE: CASE EVENT DATE: 201601
